FAERS Safety Report 14508626 (Version 2)
Quarter: 2018Q1

REPORT INFORMATION
  Report Type: Spontaneous
  Country: TW (occurrence: TW)
  Receive Date: 20180209
  Receipt Date: 20180305
  Transmission Date: 20180509
  Serious: Yes (Hospitalization)
  Sender: FDA-Public Use
  Company Number: TW-AMGEN-TWNSP2018017448

PATIENT
  Age: 82 Year
  Sex: Female

DRUGS (9)
  1. TRAMACET [Concomitant]
     Active Substance: ACETAMINOPHEN\TRAMADOL
     Indication: RHEUMATOID ARTHRITIS
     Dosage: 1 DF, BID
  2. ENBREL [Suspect]
     Active Substance: ETANERCEPT
     Indication: RHEUMATOID ARTHRITIS
     Dosage: 25 MG, 2 TIMES/WK
     Route: 058
     Dates: start: 20060713, end: 201003
  3. ENBREL [Suspect]
     Active Substance: ETANERCEPT
     Dosage: 25 MG, EVERY 10 DAYS (Q10D)
     Route: 058
     Dates: start: 20180226
  4. PREDNISOLONE. [Concomitant]
     Active Substance: PREDNISOLONE
     Indication: RHEUMATOID ARTHRITIS
     Dosage: 1 DF, QD
  5. ENBREL [Suspect]
     Active Substance: ETANERCEPT
     Dosage: 25 MG, 2 TIMES/WK
     Route: 058
     Dates: start: 20100322, end: 201304
  6. SULFASALAZINE. [Concomitant]
     Active Substance: SULFASALAZINE
     Indication: RHEUMATOID ARTHRITIS
     Dosage: 1 DF, BID
  7. ENBREL [Suspect]
     Active Substance: ETANERCEPT
     Dosage: 25 MG, QWK
     Route: 058
     Dates: start: 20130404
  8. ANCOGEN [Concomitant]
     Indication: RHEUMATOID ARTHRITIS
     Dosage: 1 DF, QD
  9. CELECOXIB. [Concomitant]
     Active Substance: CELECOXIB
     Indication: RHEUMATOID ARTHRITIS
     Dosage: 1 DF, QD

REACTIONS (4)
  - Product use issue [Unknown]
  - Pyrexia [Recovering/Resolving]
  - Chest discomfort [Recovering/Resolving]
  - Wheezing [Recovering/Resolving]

NARRATIVE: CASE EVENT DATE: 20130404
